FAERS Safety Report 15969233 (Version 4)
Quarter: 2019Q2

REPORT INFORMATION
  Report Type: Report from Study
  Country: JP (occurrence: JP)
  Receive Date: 20190215
  Receipt Date: 20190627
  Transmission Date: 20190711
  Serious: Yes (Hospitalization, Other)
  Sender: FDA-Public Use
  Company Number: JP-BRISTOL-MYERS SQUIBB COMPANY-BMS-2019-015842

PATIENT
  Age: 63 Year
  Sex: Male
  Weight: 42 kg

DRUGS (2)
  1. NIVOLUMAB [Suspect]
     Active Substance: NIVOLUMAB
     Indication: HODGKIN^S DISEASE
     Dosage: 3 MILLIGRAM/KILOGRAM
     Route: 041
     Dates: start: 20180329
  2. FILGRASTIM BS [FILGRASTIM BIOSIMILAR 3] [Suspect]
     Active Substance: FILGRASTIM
     Indication: PRODUCT USED FOR UNKNOWN INDICATION
     Dosage: UNK
     Route: 051

REACTIONS (5)
  - Lung infection [Recovered/Resolved]
  - Hepatic function abnormal [Recovered/Resolved]
  - Adrenal disorder [Unknown]
  - Cholangitis sclerosing [Unknown]
  - Renal disorder [Unknown]

NARRATIVE: CASE EVENT DATE: 20180410
